FAERS Safety Report 10399604 (Version 1)
Quarter: 2014Q3

REPORT INFORMATION
  Report Type: Spontaneous
  Country: PT (occurrence: None)
  Receive Date: 20140819
  Receipt Date: 20140819
  Transmission Date: 20150326
  Serious: Yes (Other)
  Sender: FDA-Public Use
  Company Number: 2014COR00052

PATIENT
  Age: 43 Year
  Sex: Male

DRUGS (3)
  1. ZONISAMIDE (ZONISAMIDE) UNKNOWN [Suspect]
     Active Substance: ZONISAMIDE
     Indication: COMPLEX PARTIAL SEIZURES
     Dates: start: 201209
  2. TRAZODONE [Concomitant]
     Active Substance: TRAZODONE HYDROCHLORIDE
  3. ALPRAZOLAM. [Concomitant]
     Active Substance: ALPRAZOLAM

REACTIONS (2)
  - Visual impairment [None]
  - Retinal vasculitis [None]

NARRATIVE: CASE EVENT DATE: 2012
